FAERS Safety Report 8399225-2 (Version None)
Quarter: 2012Q2

REPORT INFORMATION
  Report Type: 
  Country: None (occurrence: None)
  Receive Date: 20120531
  Receipt Date: 20120521
  Transmission Date: 20120825
  Serious: Yes (Other)
  Sender: FDA-Public Use
  Company Number: US-GLAXOSMITHKLINE-A0978972A

PATIENT
  Age: 48 Year
  Sex: Female

DRUGS (3)
  1. ROFLUMILAST [Suspect]
     Indication: ASTHMA
     Dosage: 500MCG PER DAY
     Route: 048
     Dates: start: 20120101, end: 20120301
  2. DALIRESP [Suspect]
     Indication: ASTHMA
     Dosage: 500MCG PER DAY
     Route: 048
     Dates: start: 20120101, end: 20120301
  3. ALBUTEROL [Suspect]
     Indication: ASTHMA
     Route: 065
     Dates: end: 20120301

REACTIONS (2)
  - INSOMNIA [None]
  - SUPRAVENTRICULAR TACHYCARDIA [None]
